FAERS Safety Report 4646437-7 (Version None)
Quarter: 2005Q2

REPORT INFORMATION
  Report Type: 
  Country: None (occurrence: None)
  Receive Date: 20050427
  Receipt Date: 20000405
  Transmission Date: 20051028
  Serious: No
  Sender: FDA-Public Use
  Company Number: US-GLAXOSMITHKLINE-A0117476A

PATIENT
  Age: 77 Year
  Sex: Male

DRUGS (4)
  1. FLOVENT [Suspect]
     Indication: ASTHMA
     Dosage: 110MCG TWICE PER DAY
     Route: 055
  2. SEREVENT [Suspect]
     Indication: ASTHMA
     Dosage: 1PUFF TWICE PER DAY
     Route: 055
  3. ADVAIR DISKUS 100/50 [Suspect]
     Indication: ASTHMA
     Dosage: 1PUFF TWICE PER DAY
     Route: 055
     Dates: start: 20041101
  4. BLOOD PRESSURE MEDICATION [Concomitant]
     Route: 065

REACTIONS (5)
  - CONSTIPATION [None]
  - DRY MOUTH [None]
  - DYSPHONIA [None]
  - URINE FLOW DECREASED [None]
  - VISION BLURRED [None]
